FAERS Safety Report 9106938 (Version 2)
Quarter: 2013Q1

REPORT INFORMATION
  Report Type: Spontaneous
  Country: US (occurrence: US)
  Receive Date: 20130221
  Receipt Date: 20130226
  Transmission Date: 20140127
  Serious: Yes (Hospitalization)
  Sender: FDA-Public Use
  Company Number: US-BAXTER-2013BAX005962

PATIENT
  Age: 45 Year
  Sex: Male

DRUGS (3)
  1. DIANEAL LOW CALCIUM [Suspect]
     Indication: PERITONEAL DIALYSIS
     Route: 033
  2. DIANEAL LOW CALCIUM [Suspect]
     Indication: PERITONEAL DIALYSIS
     Route: 033
  3. GLYBURIDE [Suspect]
     Indication: DIABETES MELLITUS
     Route: 065

REACTIONS (5)
  - Hypoglycaemia [Recovering/Resolving]
  - Renal failure chronic [Recovering/Resolving]
  - Type 2 diabetes mellitus [Recovering/Resolving]
  - Asthenia [Recovering/Resolving]
  - Hypertension [Recovering/Resolving]
